FAERS Safety Report 16678062 (Version 3)
Quarter: 2019Q3

REPORT INFORMATION
  Report Type: Spontaneous
  Country: US (occurrence: US)
  Receive Date: 20190807
  Receipt Date: 20190927
  Transmission Date: 20191004
  Serious: No
  Sender: FDA-Public Use
  Company Number: US-PFIZER INC-2019333561

PATIENT
  Age: 50 Year
  Sex: Male
  Weight: 108.8 kg

DRUGS (6)
  1. LYRICA [Suspect]
     Active Substance: PREGABALIN
     Dosage: 400 MG, DAILY
     Route: 048
     Dates: start: 2010
  2. LYRICA [Suspect]
     Active Substance: PREGABALIN
     Indication: FIBROMYALGIA
     Dosage: 200 MG, 1X/DAY (COUPLE OF DAYS ONCE A DAY)
  3. LYRICA [Suspect]
     Active Substance: PREGABALIN
     Dosage: 200 MG, DAILY
     Route: 048
     Dates: start: 2010
  4. LYRICA [Suspect]
     Active Substance: PREGABALIN
     Dosage: 200 MG, 3X/DAY
     Route: 048
     Dates: start: 2010
  5. LYRICA [Suspect]
     Active Substance: PREGABALIN
     Indication: NEURALGIA
     Dosage: 200 MG, 2X/DAY (TAKING TWICE A DAY)
  6. LYRICA [Suspect]
     Active Substance: PREGABALIN
     Dosage: 600 MG, DAILY
     Route: 048
     Dates: start: 2010

REACTIONS (10)
  - Hyperhidrosis [Recovering/Resolving]
  - Insomnia [Not Recovered/Not Resolved]
  - Dry mouth [Unknown]
  - Mood altered [Recovering/Resolving]
  - Withdrawal syndrome [Unknown]
  - Drug ineffective [Recovering/Resolving]
  - Body temperature abnormal [Recovering/Resolving]
  - Nervousness [Recovering/Resolving]
  - Intentional product use issue [Unknown]
  - Nausea [Recovering/Resolving]

NARRATIVE: CASE EVENT DATE: 201907
